FAERS Safety Report 17767046 (Version 2)
Quarter: 2020Q2

REPORT INFORMATION
  Report Type: Spontaneous
  Country: DE (occurrence: DE)
  Receive Date: 20200511
  Receipt Date: 20200528
  Transmission Date: 20200714
  Serious: Yes (Hospitalization, Other)
  Sender: FDA-Public Use
  Company Number: DE-PFIZER INC-2020184047

PATIENT
  Age: 50 Year
  Sex: Male
  Weight: 183 kg

DRUGS (5)
  1. ELIQUIS [Concomitant]
     Active Substance: APIXABAN
     Indication: THROMBOSIS
     Dosage: 2.5 UNK, 2X/DAY
     Route: 048
     Dates: start: 201907
  2. SUTENT [Suspect]
     Active Substance: SUNITINIB MALATE
     Dosage: 50 UNK, CYCLIC, 4 WEEKS THERAPY, 2 WEEKS PAUSE
  3. LYRICA [Concomitant]
     Active Substance: PREGABALIN
     Indication: PAIN
     Dosage: 50 UNK, 2X/DAY
     Route: 048
     Dates: start: 20200128
  4. LYRICA [Concomitant]
     Active Substance: PREGABALIN
     Dosage: 150 UNK, 2X/DAY
     Route: 048
     Dates: start: 20200227
  5. IBUPROFEN. [Concomitant]
     Active Substance: IBUPROFEN
     Indication: PAIN
     Dosage: 600 UNK, 3X/DAY
     Route: 048
     Dates: start: 20200128, end: 20200227

REACTIONS (6)
  - Myopathy [Unknown]
  - Osteonecrosis [Unknown]
  - Rash pustular [Unknown]
  - Paresis [Not Recovered/Not Resolved]
  - Paraneoplastic syndrome [Unknown]
  - Pain [Not Recovered/Not Resolved]

NARRATIVE: CASE EVENT DATE: 202002
